FAERS Safety Report 8112745-0 (Version None)
Quarter: 2012Q1

REPORT INFORMATION
  Report Type: 
  Country: None (occurrence: None)
  Receive Date: 20120203
  Receipt Date: 20120109
  Transmission Date: 20120608
  Serious: Yes (Other)
  Sender: FDA-Public Use
  Company Number: CL-ROCHE-1028239

PATIENT
  Sex: Female

DRUGS (2)
  1. ACTEMRA [Suspect]
     Indication: SPONDYLITIS
     Route: 042
  2. METHOTREXATE [Suspect]
     Indication: SPONDYLITIS
     Dates: start: 20101101

REACTIONS (2)
  - LEUKOPENIA [None]
  - ANAEMIA [None]
